FAERS Safety Report 5521204-0 (Version None)
Quarter: 2007Q4

REPORT INFORMATION
  Report Type: 
  Country: None (occurrence: None)
  Receive Date: 20071119
  Receipt Date: 20071109
  Transmission Date: 20080405
  Serious: Yes (Hospitalization)
  Sender: FDA-Public Use
  Company Number: ZA-SHR-ZA-2007-042605

PATIENT
  Age: 31 Year
  Sex: Female

DRUGS (1)
  1. MIRENA [Suspect]
     Indication: CONTRACEPTION
     Dosage: 20 A?G/DAY, CONT
     Route: 015
     Dates: start: 20070201

REACTIONS (4)
  - ABDOMINAL PAIN [None]
  - DEEP VEIN THROMBOSIS [None]
  - MENORRHAGIA [None]
  - METRORRHAGIA [None]
